FAERS Safety Report 6078214-7 (Version None)
Quarter: 2009Q1

REPORT INFORMATION
  Report Type: 
  Country: None (occurrence: None)
  Receive Date: 20090213
  Receipt Date: 20090203
  Transmission Date: 20090719
  Serious: No
  Sender: FDA-Public Use
  Company Number: JP-ELI_LILLY_AND_COMPANY-JP200902000923

PATIENT
  Sex: Female

DRUGS (1)
  1. ZYPREXA [Suspect]
     Route: 048

REACTIONS (1)
  - MENSTRUATION IRREGULAR [None]
